FAERS Safety Report 6859963-7 (Version None)
Quarter: 2010Q3

REPORT INFORMATION
  Report Type: 
  Country: None (occurrence: None)
  Receive Date: 20100720
  Receipt Date: 20100715
  Transmission Date: 20110219
  Serious: Yes (Death, Other)
  Sender: FDA-Public Use
  Company Number: PHHY2009CA45665

PATIENT
  Sex: Male

DRUGS (5)
  1. EXJADE [Suspect]
     Indication: MYELOPROLIFERATIVE DISORDER
     Dosage: 1500 MG, UNK
     Route: 048
     Dates: start: 20090904
  2. EXJADE [Suspect]
     Dosage: 1000 MG, QD
     Route: 048
     Dates: start: 20090801, end: 20100101
  3. PREDNISOLONE [Concomitant]
     Dosage: 50 MG, UNK
  4. PROSCAR [Concomitant]
     Dosage: 20 MG, UNK
  5. RABEPRAZOLE SODIUM [Concomitant]
     Dosage: 20 MG, UNK

REACTIONS (11)
  - ABDOMINAL DISCOMFORT [None]
  - BRONCHOSCOPY [None]
  - DEATH [None]
  - DYSPNOEA [None]
  - INTERSTITIAL LUNG DISEASE [None]
  - LIVER DISORDER [None]
  - LUNG INFECTION [None]
  - OEDEMA PERIPHERAL [None]
  - RENAL DISORDER [None]
  - RESPIRATORY FAILURE [None]
  - URINE OUTPUT DECREASED [None]
